FAERS Safety Report 7557464-4 (Version None)
Quarter: 2011Q2

REPORT INFORMATION
  Report Type: 
  Country: None (occurrence: None)
  Receive Date: 20110620
  Receipt Date: 20110607
  Transmission Date: 20111010
  Serious: Yes (Hospitalization)
  Sender: FDA-Public Use
  Company Number: US-ROCHE-783391

PATIENT
  Sex: Female

DRUGS (3)
  1. CISPLATIN [Suspect]
     Dosage: INTRAVENOUS OVER 60 MIN ON DAY ONE.
     Route: 042
     Dates: start: 20090311
  2. BEVACIZUMAB [Suspect]
     Dosage: INTRAVENOUS OVER 30-90 MIN ON DAY ONE. AFTER FOUR CYCLES Q THREE WEEKS FOR UPTO ONE YEAR.
     Route: 042
     Dates: start: 20090311
  3. PEMETREXED [Suspect]
     Indication: NON-SMALL CELL LUNG CANCER
     Dosage: INTRAVENOUS OVER 10 MINUTES ON DAY ONE.
     Route: 042
     Dates: start: 20090311

REACTIONS (1)
  - ARTHRALGIA [None]
